FAERS Safety Report 22325644 (Version 6)
Quarter: 2025Q3

REPORT INFORMATION
  Report Type: Spontaneous
  Country: CA (occurrence: CA)
  Receive Date: 20230516
  Receipt Date: 20250820
  Transmission Date: 20251020
  Serious: Yes (Death, Other)
  Sender: BRISTOL-MYERS SQUIBB COMPANY
  Company Number: CA-BRISTOL-MYERS SQUIBB COMPANY-2023-068242

PATIENT
  Age: 59 Year
  Sex: Female
  Weight: 68 kg

DRUGS (112)
  1. ORENCIA [Suspect]
     Active Substance: ABATACEPT
     Indication: Rheumatoid arthritis
     Route: 040
  2. ORENCIA [Suspect]
     Active Substance: ABATACEPT
     Indication: Rheumatoid arthritis
     Route: 058
  3. ORENCIA [Suspect]
     Active Substance: ABATACEPT
     Indication: Rheumatoid arthritis
  4. ACETAMINOPHEN [Concomitant]
     Active Substance: ACETAMINOPHEN
     Indication: Product used for unknown indication
  5. ACTEMRA [Concomitant]
     Active Substance: TOCILIZUMAB
     Indication: Rheumatoid arthritis
  6. ACTEMRA [Concomitant]
     Active Substance: TOCILIZUMAB
     Route: 016
  7. ACTEMRA [Concomitant]
     Active Substance: TOCILIZUMAB
     Route: 040
  8. ADALIMUMAB [Concomitant]
     Active Substance: ADALIMUMAB
     Indication: Rheumatoid arthritis
     Route: 042
  9. ADALIMUMAB [Concomitant]
     Active Substance: ADALIMUMAB
     Route: 058
  10. ADALIMUMAB [Concomitant]
     Active Substance: ADALIMUMAB
     Route: 058
  11. ALENDRONATE SODIUM [Concomitant]
     Active Substance: ALENDRONATE SODIUM
     Indication: Rheumatoid arthritis
  12. ALENDRONATE SODIUM [Concomitant]
     Active Substance: ALENDRONATE SODIUM
     Route: 048
  13. ALENDRONATE SODIUM [Concomitant]
     Active Substance: ALENDRONATE SODIUM
     Indication: Rheumatoid arthritis
  14. PREDNISONE [Concomitant]
     Active Substance: PREDNISONE
     Indication: Product used for unknown indication
     Route: 048
  15. PREDNISONE [Concomitant]
     Active Substance: PREDNISONE
  16. ARAVA [Concomitant]
     Active Substance: LEFLUNOMIDE
     Indication: Rheumatoid arthritis
  17. ARAVA [Concomitant]
     Active Substance: LEFLUNOMIDE
  18. ARAVA [Concomitant]
     Active Substance: LEFLUNOMIDE
     Route: 048
  19. ARAVA [Concomitant]
     Active Substance: LEFLUNOMIDE
     Route: 048
  20. CALCIUM GLUCONATE [Concomitant]
     Active Substance: CALCIUM GLUCONATE
     Indication: Product used for unknown indication
  21. CETIRIZINE HYDROCHLORIDE [Concomitant]
     Active Substance: CETIRIZINE HYDROCHLORIDE
     Indication: Rheumatoid arthritis
  22. CETIRIZINE HYDROCHLORIDE [Concomitant]
     Active Substance: CETIRIZINE HYDROCHLORIDE
  23. CETIRIZINE HYDROCHLORIDE\PSEUDOEPHEDRINE HYDROCHLORIDE [Concomitant]
     Active Substance: CETIRIZINE HYDROCHLORIDE\PSEUDOEPHEDRINE HYDROCHLORIDE
     Indication: Rheumatoid arthritis
  24. CIMZIA [Concomitant]
     Active Substance: CERTOLIZUMAB PEGOL
     Indication: Rheumatoid arthritis
     Route: 058
  25. CIMZIA [Concomitant]
     Active Substance: CERTOLIZUMAB PEGOL
  26. CORTISONE ACETATE [Concomitant]
     Active Substance: CORTISONE ACETATE
     Indication: Rheumatoid arthritis
  27. CORTISONE ACETATE [Concomitant]
     Active Substance: CORTISONE ACETATE
     Route: 005
  28. CORTISONE ACETATE [Concomitant]
     Active Substance: CORTISONE ACETATE
  29. CORTISONE ACETATE [Concomitant]
     Active Substance: CORTISONE ACETATE
     Route: 061
  30. CORTISONE ACETATE [Concomitant]
     Active Substance: CORTISONE ACETATE
     Route: 048
  31. DESOXIMETASONE [Concomitant]
     Active Substance: DESOXIMETASONE
     Indication: Rheumatoid arthritis
     Route: 048
  32. DESOXIMETASONE [Concomitant]
     Active Substance: DESOXIMETASONE
     Route: 058
  33. DESOXIMETASONE [Concomitant]
     Active Substance: DESOXIMETASONE
     Route: 067
  34. DESOXIMETASONE [Concomitant]
     Active Substance: DESOXIMETASONE
     Route: 061
  35. DESOXIMETASONE [Concomitant]
     Active Substance: DESOXIMETASONE
  36. DICLOFENAC [Concomitant]
     Active Substance: DICLOFENAC
     Indication: Product used for unknown indication
  37. DICLOFENAC SODIUM [Concomitant]
     Active Substance: DICLOFENAC SODIUM
     Indication: Product used for unknown indication
  38. DICLOFENAC SODIUM [Concomitant]
     Active Substance: DICLOFENAC SODIUM
  39. DIPHENHYDRAMINE HYDROCHLORIDE [Concomitant]
     Active Substance: DIPHENHYDRAMINE HYDROCHLORIDE
     Indication: Product used for unknown indication
  40. ENBREL [Concomitant]
     Active Substance: ETANERCEPT
     Indication: Rheumatoid arthritis
  41. ENBREL [Concomitant]
     Active Substance: ETANERCEPT
     Route: 058
  42. FOLIC ACID [Concomitant]
     Active Substance: FOLIC ACID
     Indication: Rheumatoid arthritis
  43. FOLIC ACID [Concomitant]
     Active Substance: FOLIC ACID
  44. FOLIC ACID [Concomitant]
     Active Substance: FOLIC ACID
  45. FOLIC ACID [Concomitant]
     Active Substance: FOLIC ACID
  46. FOLIC ACID [Concomitant]
     Active Substance: FOLIC ACID
  47. FOLIC ACID [Concomitant]
     Active Substance: FOLIC ACID
     Route: 048
  48. FOLIC ACID [Concomitant]
     Active Substance: FOLIC ACID
     Route: 048
  49. FOSAMAX [Concomitant]
     Active Substance: ALENDRONATE SODIUM
     Indication: Rheumatoid arthritis
  50. FOSAMAX [Concomitant]
     Active Substance: ALENDRONATE SODIUM
     Route: 016
  51. FOSAMAX [Concomitant]
     Active Substance: ALENDRONATE SODIUM
     Route: 048
  52. GOLIMUMAB [Concomitant]
     Active Substance: GOLIMUMAB
     Indication: Product used for unknown indication
  53. HUMIRA [Concomitant]
     Active Substance: ADALIMUMAB
     Indication: Rheumatoid arthritis
  54. HUMIRA [Concomitant]
     Active Substance: ADALIMUMAB
  55. HUMIRA [Concomitant]
     Active Substance: ADALIMUMAB
     Route: 058
  56. HYDROXYCHLOROQUINE [Concomitant]
     Active Substance: HYDROXYCHLOROQUINE
     Indication: Rheumatoid arthritis
  57. HYDROXYCHLOROQUINE [Concomitant]
     Active Substance: HYDROXYCHLOROQUINE
  58. HYDROXYCHLOROQUINE [Concomitant]
     Active Substance: HYDROXYCHLOROQUINE
  59. HYDROXYCHLOROQUINE [Concomitant]
     Active Substance: HYDROXYCHLOROQUINE
  60. HYDROXYCHLOROQUINE [Concomitant]
     Active Substance: HYDROXYCHLOROQUINE
     Route: 048
  61. HYDROXYCHLOROQUINE SULFATE [Concomitant]
     Active Substance: HYDROXYCHLOROQUINE SULFATE
     Indication: Rheumatoid arthritis
  62. HYDROXYCHLOROQUINE SULFATE [Concomitant]
     Active Substance: HYDROXYCHLOROQUINE SULFATE
  63. KEVZARA [Concomitant]
     Active Substance: SARILUMAB
     Indication: Rheumatoid arthritis
  64. KEVZARA [Concomitant]
     Active Substance: SARILUMAB
  65. LEFLUNOMIDE [Concomitant]
     Active Substance: LEFLUNOMIDE
     Indication: Rheumatoid arthritis
  66. LEFLUNOMIDE [Concomitant]
     Active Substance: LEFLUNOMIDE
  67. METHOTREXATE [Concomitant]
     Active Substance: METHOTREXATE
     Indication: Rheumatoid arthritis
     Route: 058
  68. METHOTREXATE [Concomitant]
     Active Substance: METHOTREXATE
  69. METHOTREXATE [Concomitant]
     Active Substance: METHOTREXATE
     Route: 048
  70. METHOTREXATE [Concomitant]
     Active Substance: METHOTREXATE
  71. METHOTREXATE [Concomitant]
     Active Substance: METHOTREXATE
  72. METHOTREXATE [Concomitant]
     Active Substance: METHOTREXATE
  73. METHOTREXATE [Concomitant]
     Active Substance: METHOTREXATE
     Route: 016
  74. METHOTREXATE [Concomitant]
     Active Substance: METHOTREXATE
     Route: 013
  75. PHTHALYLSULFATHIAZOLE [Concomitant]
     Active Substance: PHTHALYLSULFATHIAZOLE
     Indication: Rheumatoid arthritis
  76. PHTHALYLSULFATHIAZOLE [Concomitant]
     Active Substance: PHTHALYLSULFATHIAZOLE
  77. PREDNISONE [Concomitant]
     Active Substance: PREDNISONE
     Indication: Product used for unknown indication
     Route: 048
  78. PREDNISONE [Concomitant]
     Active Substance: PREDNISONE
  79. PREDNISONE [Concomitant]
     Active Substance: PREDNISONE
  80. PREDNISONE [Concomitant]
     Active Substance: PREDNISONE
     Route: 048
  81. PREDNISONE [Concomitant]
     Active Substance: PREDNISONE
  82. RITUXIMAB [Concomitant]
     Active Substance: RITUXIMAB
     Indication: Rheumatoid arthritis
     Route: 040
  83. RITUXIMAB [Concomitant]
     Active Substance: RITUXIMAB
  84. RITUXIMAB [Concomitant]
     Active Substance: RITUXIMAB
     Route: 058
  85. SOLU-MEDROL [Concomitant]
     Active Substance: METHYLPREDNISOLONE SODIUM SUCCINATE
     Indication: Product used for unknown indication
  86. SULFASALAZINE [Concomitant]
     Active Substance: SULFASALAZINE
     Indication: Rheumatoid arthritis
  87. SULFASALAZINE [Concomitant]
     Active Substance: SULFASALAZINE
  88. SULFASALAZINE [Concomitant]
     Active Substance: SULFASALAZINE
     Route: 048
  89. SULFASALAZINE [Concomitant]
     Active Substance: SULFASALAZINE
     Route: 058
  90. SULFASALAZINE [Concomitant]
     Active Substance: SULFASALAZINE
     Route: 048
  91. XELJANZ [Concomitant]
     Active Substance: TOFACITINIB CITRATE
     Indication: Rheumatoid arthritis
  92. XELJANZ [Concomitant]
     Active Substance: TOFACITINIB CITRATE
  93. XELJANZ [Concomitant]
     Active Substance: TOFACITINIB CITRATE
     Route: 048
  94. XELJANZ [Concomitant]
     Active Substance: TOFACITINIB CITRATE
     Route: 048
  95. ERELZI [Concomitant]
     Active Substance: ETANERCEPT-SZZS
     Indication: Rheumatoid arthritis
  96. ERELZI [Concomitant]
     Active Substance: ETANERCEPT-SZZS
     Route: 058
  97. INFLIXIMAB [Concomitant]
     Active Substance: INFLIXIMAB
     Indication: Rheumatoid arthritis
     Route: 042
  98. INFLIXIMAB [Concomitant]
     Active Substance: INFLIXIMAB
     Indication: Crohn^s disease
  99. INFLIXIMAB [Concomitant]
     Active Substance: INFLIXIMAB
     Indication: Colitis ulcerative
  100. METHYLPREDNISOLONE SODIUM SUCCINATE [Concomitant]
     Active Substance: METHYLPREDNISOLONE SODIUM SUCCINATE
     Indication: Product used for unknown indication
  101. TOFACITINIB CITRATE [Concomitant]
     Active Substance: TOFACITINIB CITRATE
     Indication: Rheumatoid arthritis
     Route: 048
  102. HYDROCORTISONE [Concomitant]
     Active Substance: HYDROCORTISONE
     Indication: Product used for unknown indication
     Route: 048
  103. CETIRIZINE HYDROCHLORIDE\PSEUDOEPHEDRINE HYDROCHLORIDE [Concomitant]
     Active Substance: CETIRIZINE HYDROCHLORIDE\PSEUDOEPHEDRINE HYDROCHLORIDE
     Indication: Rheumatoid arthritis
     Route: 048
  104. REMICADE [Concomitant]
     Active Substance: INFLIXIMAB
     Indication: Rheumatoid arthritis
     Route: 042
  105. REMICADE [Concomitant]
     Active Substance: INFLIXIMAB
     Indication: Crohn^s disease
     Route: 040
  106. REMICADE [Concomitant]
     Active Substance: INFLIXIMAB
     Indication: Colitis ulcerative
     Route: 040
  107. REMICADE [Concomitant]
     Active Substance: INFLIXIMAB
  108. SIMPONI [Concomitant]
     Active Substance: GOLIMUMAB
     Indication: Rheumatoid arthritis
     Route: 058
  109. SIMPONI [Concomitant]
     Active Substance: GOLIMUMAB
     Route: 058
  110. SIMPONI [Concomitant]
     Active Substance: GOLIMUMAB
     Route: 058
  111. STELARA [Concomitant]
     Active Substance: USTEKINUMAB
     Indication: Rheumatoid arthritis
     Route: 058
  112. STELARA [Concomitant]
     Active Substance: USTEKINUMAB
     Route: 058

REACTIONS (1)
  - Death [Fatal]
